FAERS Safety Report 11323639 (Version 1)
Quarter: 2015Q3

REPORT INFORMATION
  Report Type: Spontaneous
  Country: ES (occurrence: ES)
  Receive Date: 20150730
  Receipt Date: 20150730
  Transmission Date: 20151125
  Serious: Yes (Other)
  Sender: FDA-Public Use
  Company Number: ES-SA-2015SA106094

PATIENT
  Age: 45 Year
  Sex: Female

DRUGS (7)
  1. AUBAGIO [Suspect]
     Active Substance: TERIFLUNOMIDE
     Indication: LIPOATROPHY
     Route: 065
     Dates: start: 20150507, end: 20150613
  2. TRAMADOL. [Concomitant]
     Active Substance: TRAMADOL
  3. AUBAGIO [Suspect]
     Active Substance: TERIFLUNOMIDE
     Indication: LIPOATROPHY
     Route: 065
     Dates: start: 20150507, end: 20150613
  4. OXCARBAZEPINE. [Concomitant]
     Active Substance: OXCARBAZEPINE
  5. BACLOFEN. [Concomitant]
     Active Substance: BACLOFEN
  6. PARACETAMOL [Concomitant]
     Active Substance: ACETAMINOPHEN
  7. AMANTADINE [Concomitant]
     Active Substance: AMANTADINE

REACTIONS (3)
  - Abasia [Recovered/Resolved]
  - Off label use [Unknown]
  - Arthralgia [Recovering/Resolving]

NARRATIVE: CASE EVENT DATE: 20150507
